FAERS Safety Report 8385082-7 (Version None)
Quarter: 2012Q2

REPORT INFORMATION
  Report Type: 
  Country: None (occurrence: None)
  Receive Date: 20120524
  Receipt Date: 20120515
  Transmission Date: 20120825
  Serious: Yes (Death)
  Sender: FDA-Public Use
  Company Number: US-ALLERGAN-1205825US

PATIENT
  Age: 42 Year
  Sex: Male
  Weight: 111 kg

DRUGS (2)
  1. LUMIGAN [Suspect]
     Indication: GLAUCOMA
     Dosage: 2 GTT, QHS
     Route: 047
     Dates: start: 20050701
  2. COMBIGAN [Suspect]
     Indication: GLAUCOMA
     Dosage: 2 GTT, BID
     Route: 047
     Dates: start: 20100401

REACTIONS (1)
  - CARDIAC ARREST [None]
